FAERS Safety Report 7557472-3 (Version None)
Quarter: 2011Q2

REPORT INFORMATION
  Report Type: 
  Country: None (occurrence: None)
  Receive Date: 20110620
  Receipt Date: 20110607
  Transmission Date: 20111010
  Serious: Yes (Hospitalization)
  Sender: FDA-Public Use
  Company Number: US-ROCHE-782599

PATIENT
  Age: 53 Year
  Sex: Female

DRUGS (6)
  1. CARBOPLATIN [Suspect]
     Indication: ENDOMETRIAL CANCER
     Dosage: DOSE: 6 AUC, OVER 30 MINUTES ON DAY 1,  LAST DOSE PRIOR TO SAE (COURSE 3): 14 JUNE 2010
     Route: 042
     Dates: start: 20100503
  2. METOPROLOL TARTRATE [Concomitant]
  3. BEVACIZUMAB [Suspect]
     Indication: ENDOMETRIAL CANCER
     Dosage: OVER 30-90 MINUTES ON DAY 1, LAST DOSE PRIOR TO SAE (COURSE 3): 14 JUNE 2010
     Route: 042
     Dates: start: 20100503
  4. IXABEPILONE [Suspect]
     Indication: ENDOMETRIAL CANCER
     Dosage: OVER 1 HR ON DAY 1,  LAST DOSE PRIOR TO SAE (COURSE 3): 14 JUNE 2010
     Route: 042
     Dates: start: 20100503
  5. CARBOPLATIN [Suspect]
     Dosage: COURSE 3
     Route: 042
     Dates: start: 20100614
  6. AMLODEP [Concomitant]

REACTIONS (14)
  - BLOOD ALBUMIN DECREASED [None]
  - BLOOD CALCIUM DECREASED [None]
  - URINARY TRACT INFECTION [None]
  - BLOOD PHOSPHORUS DECREASED [None]
  - ABDOMINAL INFECTION [None]
  - DECREASED APPETITE [None]
  - BLOOD POTASSIUM DECREASED [None]
  - NEUTROPHIL COUNT DECREASED [None]
  - CONSTIPATION [None]
  - WHITE BLOOD CELL COUNT DECREASED [None]
  - NAUSEA [None]
  - HAEMOGLOBIN DECREASED [None]
  - VOMITING [None]
  - GASTROINTESTINAL ANASTOMOTIC LEAK [None]
